FAERS Safety Report 18323753 (Version 1)
Quarter: 2020Q3

REPORT INFORMATION
  Report Type: Spontaneous
  Country: US (occurrence: US)
  Receive Date: 20200929
  Receipt Date: 20200929
  Transmission Date: 20201103
  Serious: Yes (Other)
  Sender: FDA-Public Use
  Company Number: US-BSC-202000069

PATIENT
  Age: 55 Year
  Sex: Female

DRUGS (1)
  1. VARITHENA [Suspect]
     Active Substance: POLIDOCANOL
     Indication: PERIPHERAL VENOUS DISEASE
     Dosage: UNKNOWN??
     Route: 065

REACTIONS (2)
  - Deep vein thrombosis [Unknown]
  - Treatment noncompliance [Unknown]
